FAERS Safety Report 9321821 (Version 2)
Quarter: 2013Q2

REPORT INFORMATION
  Report Type: Report from Study
  Country: BR (occurrence: BR)
  Receive Date: 20130531
  Receipt Date: 20130613
  Transmission Date: 20140414
  Serious: Yes (Hospitalization)
  Sender: FDA-Public Use
  Company Number: BR-ABBOTT-13P-020-1096380-00

PATIENT
  Age: 38 Year
  Sex: Female
  Weight: 80 kg

DRUGS (8)
  1. HUMIRA [Suspect]
     Indication: PSORIATIC ARTHROPATHY
     Route: 058
     Dates: start: 20130510
  2. CLEXANE [Suspect]
     Indication: THROMBOSIS PROPHYLAXIS
     Dosage: NOT REPORTED
  3. FOLIC ACID [Concomitant]
     Indication: LIVER DISORDER
  4. FOLIC ACID [Concomitant]
     Indication: PROPHYLAXIS
  5. SERTRALINE [Concomitant]
     Indication: RHEUMATOID ARTHRITIS
  6. METHOTREXATE [Concomitant]
     Indication: PRODUCT USED FOR UNKNOWN INDICATION
  7. METHOTREXATE [Concomitant]
  8. CICLOBENZAPRINE [Concomitant]
     Indication: RHEUMATOID ARTHRITIS

REACTIONS (6)
  - Umbilical hernia [Unknown]
  - Surgery [Unknown]
  - Cholecystectomy [Unknown]
  - Erythema [Recovered/Resolved]
  - Weight decreased [Recovering/Resolving]
  - Pain [Unknown]
